FAERS Safety Report 4337302-3 (Version None)
Quarter: 2004Q2

REPORT INFORMATION
  Report Type: 
  Country: None (occurrence: None)
  Receive Date: 20040413
  Receipt Date: 20031230
  Transmission Date: 20050107
  Serious: No
  Sender: FDA-Public Use
  Company Number: US-GLAXOSMITHKLINE-A0490844A

PATIENT
  Age: 18 Year
  Sex: Male

DRUGS (4)
  1. TIMENTIN [Suspect]
     Indication: URINARY TRACT INFECTION
     Dosage: 3.1G FOUR TIMES PER DAY
     Route: 042
     Dates: start: 20031215, end: 20031229
  2. ZANTAC [Concomitant]
     Route: 048
  3. DILANTIN [Concomitant]
  4. SENOKOT [Concomitant]

REACTIONS (1)
  - CRYSTAL URINE [None]
